FAERS Safety Report 6243824-0 (Version None)
Quarter: 2009Q2

REPORT INFORMATION
  Report Type: 
  Country: None (occurrence: None)
  Receive Date: 20090624
  Receipt Date: 20090618
  Transmission Date: 20091009
  Serious: Yes (Other)
  Sender: FDA-Public Use
  Company Number: US-JNJCH-2009017031

PATIENT
  Age: 18 Month
  Sex: Male
  Weight: 12.2 kg

DRUGS (1)
  1. BENADRYL [Suspect]
     Indication: NONSPECIFIC REACTION
     Dosage: TEXT:3/4 TEASPOONFUL ONCE
     Route: 048
     Dates: start: 20090617, end: 20090617

REACTIONS (5)
  - DYSPNOEA [None]
  - ECZEMA [None]
  - HYPERSENSITIVITY [None]
  - OFF LABEL USE [None]
  - WRONG DRUG ADMINISTERED [None]
